FAERS Safety Report 8965830 (Version 2)
Quarter: 2013Q1

REPORT INFORMATION
  Report Type: Spontaneous
  Country: JP (occurrence: JP)
  Receive Date: 20121217
  Receipt Date: 20130213
  Transmission Date: 20140127
  Serious: Yes (Disabling)
  Sender: FDA-Public Use
  Company Number: JP-GE HEALTHCARE MEDICAL DIAGNOSTICS-MSTR-NO-1212S-0066

PATIENT
  Age: 85 Year
  Sex: Male
  Weight: 50 kg

DRUGS (10)
  1. METASTRON [Suspect]
     Indication: METASTATIC PAIN
     Route: 042
     Dates: start: 20120925, end: 20120925
  2. METASTRON [Suspect]
     Indication: THERAPEUTIC PROCEDURE
  3. MUCOSTA [Concomitant]
  4. ALLEGRA [Concomitant]
  5. HARNAL [Concomitant]
  6. DECADRON [Concomitant]
  7. OMEPRAL [Concomitant]
  8. HYPEN [Concomitant]
  9. TRAMADOL [Concomitant]
  10. NOVAMIN [Concomitant]

REACTIONS (1)
  - Anaemia [Not Recovered/Not Resolved]
